FAERS Safety Report 5108400-1 (Version None)
Quarter: 2006Q3

REPORT INFORMATION
  Report Type: 
  Country: None (occurrence: None)
  Receive Date: 20060919
  Receipt Date: 20060918
  Transmission Date: 20061208
  Serious: Yes (Hospitalization)
  Sender: FDA-Public Use
  Company Number: US-BOEHRINGER INGELHEIM PHARMACEUTICALS, INC.-2006-BP-10979BP

PATIENT
  Sex: Female

DRUGS (6)
  1. MIRAPEX [Suspect]
     Indication: PARKINSON'S DISEASE
     Route: 048
     Dates: start: 20010101
  2. MIRAPEX [Suspect]
     Route: 048
     Dates: start: 19970101
  3. CARBIDOPA AND LEVODOPA [Concomitant]
  4. COMTAN [Concomitant]
  5. IBUPROFEN [Concomitant]
  6. FUROSEMIDE [Concomitant]

REACTIONS (7)
  - ARTHRITIS [None]
  - BLADDER DISCOMFORT [None]
  - CONDITION AGGRAVATED [None]
  - GAIT DISTURBANCE [None]
  - PELVIC FRACTURE [None]
  - ROAD TRAFFIC ACCIDENT [None]
  - SENSATION OF HEAVINESS [None]
